FAERS Safety Report 10510443 (Version 4)
Quarter: 2015Q1

REPORT INFORMATION
  Report Type: Report from Study
  Country: SK (occurrence: SK)
  Receive Date: 20141010
  Receipt Date: 20150211
  Transmission Date: 20150720
  Serious: Yes (Hospitalization)
  Sender: FDA-Public Use
  Company Number: SK-AMGEN-SVKCT2014077207

PATIENT
  Age: 74 Year
  Sex: Female
  Weight: 79 kg

DRUGS (10)
  1. CONCOR [Concomitant]
     Active Substance: BISOPROLOL FUMARATE
     Dosage: 5 MG, UNK
     Route: 048
     Dates: start: 200810
  2. GLICLADA [Concomitant]
     Active Substance: GLICLAZIDE
     Dosage: 30 MG, UNK
     Route: 048
     Dates: start: 200905
  3. NOLIPREL FORTE [Concomitant]
     Dosage: 10 MG, UNK
     Route: 048
     Dates: start: 200810, end: 20140924
  4. DENOSUMAB [Suspect]
     Active Substance: DENOSUMAB
     Indication: BREAST CANCER
     Dosage: UNK
     Route: 058
     Dates: start: 20120321
  5. GLUCOPHAGE [Concomitant]
     Active Substance: METFORMIN HYDROCHLORIDE
     Dosage: 100 MG, UNK
     Route: 048
     Dates: start: 201008
  6. ZINNAT                             /00454602/ [Concomitant]
     Dosage: 500 MG, UNK
     Route: 048
     Dates: start: 20140821, end: 20140924
  7. ETRUZIL [Concomitant]
     Dosage: 2.5 MG, UNK IN MORNING
  8. KOMBI KALZ [Concomitant]
     Dosage: 1000 MG CALCIUM CARBONATE AND 880 IU CHOLECALCIFEROL, UNK
     Route: 048
     Dates: start: 20120321
  9. THIOGAMMA [Concomitant]
     Dosage: 600 MG, UNK
     Route: 048
     Dates: start: 201008
  10. AMLOPIN                            /00972401/ [Concomitant]
     Dosage: 5 MG, UNK
     Route: 048
     Dates: start: 200810

REACTIONS (1)
  - Osteitis [Recovered/Resolved]

NARRATIVE: CASE EVENT DATE: 20140925
